FAERS Safety Report 11113728 (Version 2)
Quarter: 2015Q3

REPORT INFORMATION
  Report Type: Spontaneous
  Country: US (occurrence: US)
  Receive Date: 20150514
  Receipt Date: 20150721
  Transmission Date: 20151125
  Serious: Yes (Death, Other)
  Sender: FDA-Public Use
  Company Number: US-GLAXOSMITHKLINE INC.-US2015062555

PATIENT
  Sex: Male

DRUGS (5)
  1. ADVAIR DISKUS [Suspect]
     Active Substance: FLUTICASONE PROPIONATE\SALMETEROL XINAFOATE
     Indication: CHRONIC OBSTRUCTIVE PULMONARY DISEASE
     Dosage: 500/50
     Route: 055
     Dates: start: 201205, end: 20150413
  2. CARVEDILOL. [Concomitant]
     Active Substance: CARVEDILOL
  3. ALBUTEROL NEBULIZER [Concomitant]
     Active Substance: ALBUTEROL
  4. VASOTEC [Concomitant]
     Active Substance: ENALAPRIL MALEATE
  5. TUDORZA PRESSAIR [Concomitant]
     Active Substance: ACLIDINIUM BROMIDE

REACTIONS (5)
  - Myocardial infarction [Fatal]
  - Chronic obstructive pulmonary disease [Fatal]
  - Cardiac failure congestive [Unknown]
  - Pain [Unknown]
  - Hospice care [Unknown]
